FAERS Safety Report 19235421 (Version 4)
Quarter: 2021Q3

REPORT INFORMATION
  Report Type: Report from Study
  Country: CA (occurrence: CA)
  Receive Date: 20210510
  Receipt Date: 20210825
  Transmission Date: 20211014
  Serious: Yes (Hospitalization, Other)
  Sender: FDA-Public Use
  Company Number: CA-UCBSA-2021020388

PATIENT
  Age: 18 Year
  Sex: Female

DRUGS (2)
  1. CERTOLIZUMAB PEGOL AUTOCLICKS [Suspect]
     Active Substance: CERTOLIZUMAB PEGOL
     Indication: PSORIASIS
     Dosage: OTHER
     Dates: start: 20210107, end: 2021
  2. CERTOLIZUMAB PEGOL AUTOCLICKS [Suspect]
     Active Substance: CERTOLIZUMAB PEGOL
     Dosage: UNK
     Dates: start: 2021, end: 20210506

REACTIONS (4)
  - Maternal exposure during pregnancy [Unknown]
  - Anaemia [Unknown]
  - Urinary tract infection [Unknown]
  - Placental insufficiency [Unknown]

NARRATIVE: CASE EVENT DATE: 20210107
